FAERS Safety Report 12249062 (Version 4)
Quarter: 2016Q2

REPORT INFORMATION
  Report Type: Spontaneous
  Country: AU (occurrence: AU)
  Receive Date: 20160408
  Receipt Date: 20160614
  Transmission Date: 20160815
  Serious: Yes (Death, Hospitalization)
  Sender: FDA-Public Use
  Company Number: AU-BAYER-2016-064459

PATIENT
  Age: 72 Year
  Sex: Female
  Weight: 57 kg

DRUGS (6)
  1. ADEMPAS [Suspect]
     Active Substance: RIOCIGUAT
     Indication: SCLERODERMA
     Dosage: 2.5 MG, TID
     Route: 048
     Dates: end: 20140903
  2. ADEMPAS [Suspect]
     Active Substance: RIOCIGUAT
     Indication: PULMONARY ARTERIAL HYPERTENSION
     Dosage: UNK
     Route: 048
     Dates: start: 201103
  3. AMBRISENTAN [Concomitant]
     Active Substance: AMBRISENTAN
     Indication: PULMONARY ARTERIAL HYPERTENSION
     Dosage: 10 MG, QD
     Route: 048
     Dates: start: 200910, end: 201409
  4. EPOPROSTENOL. [Concomitant]
     Active Substance: EPOPROSTENOL
     Indication: PULMONARY ARTERIAL HYPERTENSION
     Dosage: 14 KG, UNK
     Route: 042
     Dates: start: 201311, end: 201409
  5. AMBRISENTAN [Concomitant]
     Active Substance: AMBRISENTAN
     Indication: SCLERODERMA
  6. EPOPROSTENOL. [Concomitant]
     Active Substance: EPOPROSTENOL
     Indication: SCLERODERMA

REACTIONS (3)
  - Right ventricular failure [Fatal]
  - Pulmonary hypertension [None]
  - Vascular resistance pulmonary increased [None]

NARRATIVE: CASE EVENT DATE: 201408
